FAERS Safety Report 4539867-5 (Version None)
Quarter: 2004Q4

REPORT INFORMATION
  Report Type: 
  Country: None (occurrence: None)
  Receive Date: 20041223
  Receipt Date: 20041213
  Transmission Date: 20050328
  Serious: Yes (Hospitalization)
  Sender: FDA-Public Use
  Company Number: 2004110836

PATIENT
  Age: 30 Year
  Sex: Female

DRUGS (2)
  1. AZITHROMYCIN [Suspect]
     Indication: CHLAMYDIAL INFECTION
     Dosage: 1 GRAM (1 GRAM, ONE TIME DOSE STAT), ORAL
     Route: 048
     Dates: start: 20040901, end: 20040901
  2. CITALOPRAM [Concomitant]

REACTIONS (2)
  - EOSINOPHILIC PNEUMONIA [None]
  - NIGHT SWEATS [None]
